FAERS Safety Report 7704277-6 (Version None)
Quarter: 2011Q3

REPORT INFORMATION
  Report Type: 
  Country: None (occurrence: None)
  Receive Date: 20110823
  Receipt Date: 20110812
  Transmission Date: 20111222
  Serious: Yes (Other)
  Sender: FDA-Public Use
  Company Number: PHHY2011BE32071

PATIENT
  Age: 74 Year
  Sex: Female

DRUGS (7)
  1. ASAFLOW [Concomitant]
  2. VITAMIN D [Concomitant]
  3. NEBIVOLOL HCL [Concomitant]
  4. FENOFIBRATE [Concomitant]
  5. YENTREVE [Concomitant]
  6. ZOLEDRONOC ACID [Suspect]
     Indication: OSTEOPOROSIS POSTMENOPAUSAL
     Dosage: 5 MG, UNK
     Route: 042
     Dates: start: 20110404
  7. CALCIUM CARBONATE [Concomitant]

REACTIONS (10)
  - SKIN REACTION [None]
  - SYNCOPE [None]
  - HEADACHE [None]
  - HYPERSENSITIVITY [None]
  - NAUSEA [None]
  - RASH ERYTHEMATOUS [None]
  - PAIN IN EXTREMITY [None]
  - BLOOD PRESSURE ABNORMAL [None]
  - INSOMNIA [None]
  - CHILLS [None]
